FAERS Safety Report 14688604 (Version 2)
Quarter: 2018Q2

REPORT INFORMATION
  Report Type: Report from Study
  Country: JP (occurrence: JP)
  Receive Date: 20180328
  Receipt Date: 20180521
  Transmission Date: 20180711
  Serious: Yes (Hospitalization, Other)
  Sender: FDA-Public Use
  Company Number: JP-JNJFOC-20180326292

PATIENT
  Age: 48 Year
  Sex: Male
  Weight: 57 kg

DRUGS (19)
  1. DEXAMETHASONE. [Concomitant]
     Active Substance: DEXAMETHASONE
     Indication: PLASMA CELL MYELOMA
     Route: 048
     Dates: start: 20171206, end: 20171223
  2. DARZALEX [Suspect]
     Active Substance: DARATUMUMAB
     Indication: PLASMA CELL MYELOMA
     Route: 041
     Dates: start: 20171206, end: 20171222
  3. DEXAMETHASONE. [Concomitant]
     Active Substance: DEXAMETHASONE
     Indication: PLASMA CELL MYELOMA
     Route: 048
     Dates: start: 20180126, end: 20180210
  4. ASPIRIN. [Concomitant]
     Active Substance: ASPIRIN
     Route: 048
     Dates: start: 20171206
  5. BORTEZOMIB [Concomitant]
     Active Substance: BORTEZOMIB
     Dates: start: 20180129, end: 20180129
  6. BORTEZOMIB [Concomitant]
     Active Substance: BORTEZOMIB
     Dates: start: 20180226, end: 20180226
  7. BORTEZOMIB [Concomitant]
     Active Substance: BORTEZOMIB
     Dates: start: 20180222, end: 20180222
  8. BORTEZOMIB [Concomitant]
     Active Substance: BORTEZOMIB
     Dates: start: 20180305, end: 20180305
  9. DARZALEX [Suspect]
     Active Substance: DARATUMUMAB
     Indication: PLASMA CELL MYELOMA
     Route: 041
     Dates: start: 20180126, end: 20180209
  10. DARZALEX [Suspect]
     Active Substance: DARATUMUMAB
     Indication: PLASMA CELL MYELOMA
     Route: 041
     Dates: start: 20180219
  11. BORTEZOMIB [Concomitant]
     Active Substance: BORTEZOMIB
     Dates: start: 20180126, end: 20180126
  12. BORTEZOMIB [Concomitant]
     Active Substance: BORTEZOMIB
     Dates: start: 20180202, end: 20180202
  13. BORTEZOMIB [Concomitant]
     Active Substance: BORTEZOMIB
     Dates: start: 20180205, end: 20180205
  14. LENALIDOMIDE [Suspect]
     Active Substance: LENALIDOMIDE
     Indication: PLASMA CELL MYELOMA
     Route: 048
     Dates: start: 20171206, end: 20171226
  15. BORTEZOMIB [Concomitant]
     Active Substance: BORTEZOMIB
     Dates: start: 20180219, end: 20180219
  16. LENADEX [Concomitant]
     Active Substance: DEXAMETHASONE ACETATE
     Route: 048
     Dates: start: 20171206, end: 20171228
  17. DARZALEX [Suspect]
     Active Substance: DARATUMUMAB
     Indication: PLASMA CELL MYELOMA
     Route: 041
     Dates: start: 20171206, end: 20171227
  18. DEXAMETHASONE. [Concomitant]
     Active Substance: DEXAMETHASONE
     Indication: PLASMA CELL MYELOMA
     Route: 048
     Dates: start: 20180219, end: 20180306
  19. BORTEZOMIB [Concomitant]
     Active Substance: BORTEZOMIB
     Dates: start: 20180301, end: 20180301

REACTIONS (1)
  - Cerebral infarction [Recovered/Resolved]

NARRATIVE: CASE EVENT DATE: 20180109
